FAERS Safety Report 5133049-4 (Version None)
Quarter: 2006Q4

REPORT INFORMATION
  Report Type: 
  Country: None (occurrence: None)
  Receive Date: 20061017
  Receipt Date: 20061003
  Transmission Date: 20070319
  Serious: Yes (Death)
  Sender: FDA-Public Use
  Company Number: 14105

PATIENT
  Age: 61 Year
  Sex: Female

DRUGS (6)
  1. PACLITAXEL [Suspect]
  2. CARBOPLATIN [Suspect]
  3. DMXAA [Suspect]
     Indication: OVARIAN EPITHELIAL CANCER RECURRENT
     Dosage: 2160 MG FREQ UNK IV
     Route: 042
     Dates: start: 20060307, end: 20060418
  4. ASPIRIN [Concomitant]
  5. PANTOPRAZOLE SODIUM [Concomitant]
  6. ATORVASTATIN CALCIUM [Concomitant]

REACTIONS (7)
  - BLOOD PRESSURE DECREASED [None]
  - BRADYCARDIA [None]
  - BRAIN HYPOXIA [None]
  - BRONCHOSPASM [None]
  - CONVULSION [None]
  - RESPIRATORY FAILURE [None]
  - RESUSCITATION [None]
